FAERS Safety Report 5926241-X (Version None)
Quarter: 2008Q4

REPORT INFORMATION
  Report Type: 
  Country: None (occurrence: None)
  Receive Date: 20081022
  Receipt Date: 20081013
  Transmission Date: 20090506
  Serious: Yes (Hospitalization)
  Sender: FDA-Public Use
  Company Number: US-RB-004215-08

PATIENT
  Age: 32 Year
  Sex: Female

DRUGS (2)
  1. CHILDREN'S DELSYM ORANGE [Suspect]
     Dosage: 2 TEASPOONS TAKEN ONCE ON 28-AUG-2008. 1 TEASPOON TAKEN ON 15-SEP-2008.
     Route: 048
     Dates: start: 20080828
  2. ORTHO-TRICYCLEN BIRTH CONTROL PILLS [Concomitant]

REACTIONS (8)
  - CHEST DISCOMFORT [None]
  - DIZZINESS [None]
  - HYPOVENTILATION [None]
  - MUSCULAR WEAKNESS [None]
  - SINUSITIS [None]
  - SYNCOPE [None]
  - TREMOR [None]
  - YAWNING [None]
